FAERS Safety Report 15600474 (Version 2)
Quarter: 2018Q4

REPORT INFORMATION
  Report Type: Spontaneous
  Country: GB (occurrence: GB)
  Receive Date: 20181109
  Receipt Date: 20181115
  Transmission Date: 20190205
  Serious: Yes (Disabling, Other)
  Sender: FDA-Public Use
  Company Number: GB-ACCORD-091123

PATIENT
  Age: 4 Year
  Sex: Male
  Weight: 15 kg

DRUGS (6)
  1. SEPTRIN [Concomitant]
     Active Substance: SULFAMETHOXAZOLE\TRIMETHOPRIM
  2. METHOTREXATE. [Suspect]
     Active Substance: METHOTREXATE
     Indication: ACUTE LYMPHOCYTIC LEUKAEMIA
     Route: 037
     Dates: start: 20071204, end: 20100422
  3. PEGASPARGASE [Concomitant]
     Active Substance: PEGASPARGASE
     Indication: ACUTE LYMPHOCYTIC LEUKAEMIA
  4. VINCRISTINE [Concomitant]
     Active Substance: VINCRISTINE
     Indication: ACUTE LYMPHOCYTIC LEUKAEMIA
  5. MERCAPTOPURINE ANHYDROUS [Concomitant]
     Indication: ACUTE LYMPHOCYTIC LEUKAEMIA
  6. DEXAMETHASONE. [Concomitant]
     Active Substance: DEXAMETHASONE
     Indication: ACUTE LYMPHOCYTIC LEUKAEMIA

REACTIONS (8)
  - Ocular discomfort [Unknown]
  - Limbal stem cell deficiency [Not Recovered/Not Resolved]
  - Corneal epithelium defect [Unknown]
  - Lacrimation increased [Unknown]
  - Keratitis bacterial [Unknown]
  - Varicella [Unknown]
  - Photophobia [Unknown]
  - Corneal oedema [Unknown]

NARRATIVE: CASE EVENT DATE: 200905
